FAERS Safety Report 10047043 (Version 2)
Quarter: 2014Q1

REPORT INFORMATION
  Report Type: Spontaneous
  Country: US (occurrence: US)
  Receive Date: 20140331
  Receipt Date: 20140331
  Transmission Date: 20141002
  Serious: No
  Sender: FDA-Public Use
  Company Number: US-MYLANLABS-2009S1004540

PATIENT
  Age: 57 Year
  Sex: Male
  Weight: 73.48 kg

DRUGS (5)
  1. FENTANYL TRANSDERMAL SYSTEM [Suspect]
     Indication: OROPHARYNGEAL PAIN
     Dosage: CHANGED Q72H
     Route: 062
     Dates: start: 20090224
  2. FENTANYL TRANSDERMAL SYSTEM [Suspect]
     Indication: ORAL PAIN
     Dosage: CHANGED Q72H
     Route: 062
     Dates: start: 20090224
  3. FENTANYL TRANSDERMAL SYSTEM [Suspect]
     Indication: CANCER PAIN
     Dosage: CHANGED Q72H
     Route: 062
     Dates: start: 20090224
  4. HYDROCODONE [Concomitant]
     Indication: BREAKTHROUGH PAIN
     Dosage: LIQUID
     Route: 048
  5. ZANTAC [Concomitant]

REACTIONS (5)
  - Drug ineffective [Recovered/Resolved]
  - Pain [Recovered/Resolved]
  - Amnesia [Recovered/Resolved]
  - Hallucination [Recovered/Resolved]
  - Nightmare [Recovered/Resolved]
